FAERS Safety Report 7065657-8 (Version None)
Quarter: 2010Q4

REPORT INFORMATION
  Report Type: 
  Country: None (occurrence: None)
  Receive Date: 20101027
  Receipt Date: 20101022
  Transmission Date: 20110411
  Serious: Yes (Hospitalization, Other)
  Sender: FDA-Public Use
  Company Number: DE-ROCHE-736617

PATIENT
  Sex: Male

DRUGS (2)
  1. XELODA [Suspect]
     Route: 048
     Dates: start: 20100106
  2. OXALIPLATIN [Concomitant]
     Dates: start: 20100106

REACTIONS (3)
  - BLINDNESS TRANSIENT [None]
  - CATARACT [None]
  - RETINAL DETACHMENT [None]
